FAERS Safety Report 6298206-2 (Version None)
Quarter: 2009Q3

REPORT INFORMATION
  Report Type: 
  Country: None (occurrence: None)
  Receive Date: 20090805
  Receipt Date: 20090804
  Transmission Date: 20100115
  Serious: Yes (Hospitalization)
  Sender: FDA-Public Use
  Company Number: US-BRISTOL-MYERS SQUIBB COMPANY-14726491

PATIENT
  Age: 32 Year
  Sex: Male
  Weight: 87 kg

DRUGS (2)
  1. COUMADIN [Suspect]
     Dosage: DOSE RAISED TO 7MG THEN LOWERED TO 4MG
  2. METANX [Concomitant]

REACTIONS (5)
  - BLOOD PRESSURE INCREASED [None]
  - DIZZINESS [None]
  - HEADACHE [None]
  - HEART RATE INCREASED [None]
  - HYPOAESTHESIA [None]
